FAERS Safety Report 18140709 (Version 1)
Quarter: 2020Q3

REPORT INFORMATION
  Report Type: Spontaneous
  Country: US (occurrence: US)
  Receive Date: 20200812
  Receipt Date: 20200812
  Transmission Date: 20201103
  Serious: No
  Sender: FDA-Public Use
  Company Number: None

PATIENT
  Age: 62 Year
  Sex: Male

DRUGS (1)
  1. ERENUMAB?AOOE (ERENUMAB?AOOE 140MG/ML AUTOINJECTOR,1ML) [Suspect]
     Active Substance: ERENUMAB-AOOE
     Indication: MIGRAINE
     Dosage: ?          OTHER FREQUENCY:OTHER;?
     Route: 058
     Dates: start: 20200516

REACTIONS (3)
  - Device malfunction [None]
  - Needle issue [None]
  - Incorrect dose administered [None]

NARRATIVE: CASE EVENT DATE: 20200617
